FAERS Safety Report 15316272 (Version 1)
Quarter: 2018Q3

REPORT INFORMATION
  Report Type: Spontaneous
  Country: US (occurrence: US)
  Receive Date: 20180816
  Receipt Date: 20180816
  Transmission Date: 20181010
  Serious: Yes (Other)
  Sender: FDA-Public Use
  Company Number: None

PATIENT
  Age: 83 Year
  Sex: Male
  Weight: 79.6 kg

DRUGS (1)
  1. LISINOPRIL. [Suspect]
     Active Substance: LISINOPRIL
     Indication: HYPERTENSION
     Dosage: ?          OTHER ROUTE:PERCUTANEOUS ENDOSCOPIC GASTROSTOMY (PEG?
     Dates: start: 20180731, end: 20180809

REACTIONS (8)
  - Sepsis [None]
  - Hemiplegia [None]
  - Dysphagia [None]
  - Aspartate aminotransferase increased [None]
  - Cerebrovascular accident [None]
  - Aphasia [None]
  - Alanine aminotransferase increased [None]
  - Transaminases increased [None]

NARRATIVE: CASE EVENT DATE: 20180809
